FAERS Safety Report 17072677 (Version 1)
Quarter: 2019Q4

REPORT INFORMATION
  Report Type: Spontaneous
  Country: FR (occurrence: FR)
  Receive Date: 20191125
  Receipt Date: 20191125
  Transmission Date: 20200122
  Serious: Yes (Hospitalization)
  Sender: FDA-Public Use
  Company Number: FR-NAPPMUNDI-GBR-2019-0073101

PATIENT
  Age: 48 Year
  Sex: Male

DRUGS (1)
  1. MORPHINE SULFATE. [Suspect]
     Active Substance: MORPHINE SULFATE
     Indication: PRODUCT USED FOR UNKNOWN INDICATION
     Dosage: 400 MG, DAILY
     Route: 065
     Dates: start: 201904

REACTIONS (2)
  - Drug dependence [Not Recovered/Not Resolved]
  - Endocarditis [Recovering/Resolving]

NARRATIVE: CASE EVENT DATE: 201904
